FAERS Safety Report 4354405-8 (Version None)
Quarter: 2004Q2

REPORT INFORMATION
  Report Type: 
  Country: None (occurrence: None)
  Receive Date: 20040503
  Receipt Date: 20040419
  Transmission Date: 20050107
  Serious: Yes (Hospitalization)
  Sender: FDA-Public Use
  Company Number: 2004CG00717

PATIENT
  Age: 70 Year
  Sex: Male

DRUGS (4)
  1. ATACAND [Suspect]
     Indication: CARDIAC FAILURE
     Dosage: 16 MG DAILY PO
     Route: 048
     Dates: start: 20040301
  2. BETA-BLOCKER [Suspect]
     Indication: CARDIAC FAILURE
  3. DIURETIC DRUG [Suspect]
     Indication: CARDIAC FAILURE
  4. COZAAR [Suspect]
     Indication: CARDIAC FAILURE
     Dates: end: 20040301

REACTIONS (2)
  - CONDITION AGGRAVATED [None]
  - PEMPHIGOID [None]
